FAERS Safety Report 4883938-0 (Version None)
Quarter: 2006Q1

REPORT INFORMATION
  Report Type: 
  Country: None (occurrence: None)
  Receive Date: 20060111
  Receipt Date: 20050816
  Transmission Date: 20060701
  Serious: Yes (Death, Other)
  Sender: FDA-Public Use
  Company Number: 2005BH003504

PATIENT
  Sex: Male

DRUGS (2)
  1. HEMOFIL [Suspect]
     Indication: HAEMOPHILIA
     Dosage: IV
     Route: 042
  2. PROPLEX T [Suspect]
     Indication: HAEMOPHILIA
     Dosage: IV
     Route: 042

REACTIONS (2)
  - HEPATITIS C VIRUS [None]
  - HIV INFECTION [None]
